FAERS Safety Report 4712655-2 (Version None)
Quarter: 2005Q3

REPORT INFORMATION
  Report Type: 
  Country: None (occurrence: None)
  Receive Date: 20050712
  Receipt Date: 20050630
  Transmission Date: 20060218
  Serious: Yes (Other)
  Sender: FDA-Public Use
  Company Number: IT-MERCK-0507ITA00007

PATIENT
  Age: 67 Year
  Sex: Male

DRUGS (8)
  1. CANCIDAS [Suspect]
     Indication: TRICHOSPORON INFECTION
     Route: 042
  2. CANCIDAS [Suspect]
     Route: 042
  3. CANCIDAS [Suspect]
     Indication: PNEUMONIA
     Route: 042
  4. CANCIDAS [Suspect]
     Route: 042
  5. CIPROFLOXACIN [Concomitant]
     Route: 048
  6. FLUCONAZOLE [Concomitant]
     Route: 048
  7. ANTIMICROBIAL (UNSPECIFIED) [Concomitant]
     Route: 065
  8. VORICONAZOLE [Concomitant]
     Route: 065

REACTIONS (2)
  - BLOOD PRESSURE SYSTOLIC DECREASED [None]
  - DRUG INEFFECTIVE [None]
